FAERS Safety Report 24789245 (Version 4)
Quarter: 2025Q2

REPORT INFORMATION
  Report Type: Spontaneous
  Country: US (occurrence: US)
  Receive Date: 20241230
  Receipt Date: 20250423
  Transmission Date: 20250716
  Serious: Yes (Other)
  Sender: PFIZER
  Company Number: US-PFIZER INC-PV202400169674

PATIENT
  Age: 72 Year
  Sex: Female

DRUGS (2)
  1. TUKYSA [Suspect]
     Active Substance: TUCATINIB
     Dosage: 150MG; 2 TABLETS EVERY 12 HOURS/300 MG TWICE DAILY
  2. CAPECITABINE [Suspect]
     Active Substance: CAPECITABINE

REACTIONS (4)
  - Metastases to liver [Unknown]
  - Malignant neoplasm progression [Unknown]
  - Gastrointestinal infection [Unknown]
  - Gastric ulcer [Unknown]
